FAERS Safety Report 10378786 (Version 1)
Quarter: 2014Q3

REPORT INFORMATION
  Report Type: Spontaneous
  Country: US (occurrence: US)
  Receive Date: 20140812
  Receipt Date: 20140812
  Transmission Date: 20150326
  Serious: Yes (Hospitalization)
  Sender: FDA-Public Use
  Company Number: US-GILEAD-2014-0111508

PATIENT
  Age: 80 Year
  Sex: Male

DRUGS (13)
  1. QUINIDINE [Concomitant]
     Active Substance: QUINIDINE
  2. AMLODIPINE [Concomitant]
     Active Substance: AMLODIPINE BESYLATE
  3. METOLAZONE. [Concomitant]
     Active Substance: METOLAZONE
  4. ALLOPURINOL. [Concomitant]
     Active Substance: ALLOPURINOL
  5. LETAIRIS [Suspect]
     Active Substance: AMBRISENTAN
     Indication: PRODUCT USED FOR UNKNOWN INDICATION
     Dosage: 5 MG, QD
     Route: 065
     Dates: start: 20120412
  6. OMEPRAZOLE. [Concomitant]
     Active Substance: OMEPRAZOLE
  7. SENSIPAR [Concomitant]
     Active Substance: CINACALCET HYDROCHLORIDE
  8. POTASSIUM [Concomitant]
     Active Substance: POTASSIUM
  9. INSULIN [Concomitant]
     Active Substance: INSULIN NOS
  10. FUROSEMIDE. [Concomitant]
     Active Substance: FUROSEMIDE
  11. LUMIGAN [Concomitant]
     Active Substance: BIMATOPROST
  12. LISINOPRIL. [Concomitant]
     Active Substance: LISINOPRIL
  13. SIMVASTATIN. [Concomitant]
     Active Substance: SIMVASTATIN

REACTIONS (1)
  - Infection [Unknown]
